FAERS Safety Report 7293112-9 (Version None)
Quarter: 2011Q1

REPORT INFORMATION
  Report Type: 
  Country: None (occurrence: None)
  Receive Date: 20110203
  Receipt Date: 20110125
  Transmission Date: 20110831
  Serious: Yes (Other)
  Sender: FDA-Public Use
  Company Number: 2011SP000465

PATIENT
  Sex: Female

DRUGS (1)
  1. MERCILON (DESOGESTREL/ETHINYLESTRADIOL /00570801/) [Suspect]
     Indication: MENSTRUATION IRREGULAR
     Dates: start: 20101220, end: 20110101

REACTIONS (2)
  - FLATULENCE [None]
  - SWELLING FACE [None]
